FAERS Safety Report 12170876 (Version 1)
Quarter: 2016Q1

REPORT INFORMATION
  Report Type: Spontaneous
  Country: US (occurrence: US)
  Receive Date: 20160311
  Receipt Date: 20160311
  Transmission Date: 20160526
  Serious: Yes (Life-Threatening, Hospitalization, Other)
  Sender: FDA-Public Use
  Company Number: US-009507513-1603USA004357

PATIENT
  Age: 74 Year
  Sex: Female

DRUGS (7)
  1. ZOLINZA [Suspect]
     Active Substance: VORINOSTAT
     Indication: MYCOSIS FUNGOIDES
     Dosage: 4 CAPSULES IN THE MORNING WITH BREAKFAST
     Route: 048
     Dates: start: 20150901
  2. DIOVAN [Concomitant]
     Active Substance: VALSARTAN
  3. METOPROLOL. [Concomitant]
     Active Substance: METOPROLOL
  4. LANTUS [Concomitant]
     Active Substance: INSULIN GLARGINE
  5. COUMADIN [Concomitant]
     Active Substance: WARFARIN SODIUM
  6. HUMALOG [Concomitant]
     Active Substance: INSULIN LISPRO
  7. HYDROCHLOROTHIAZIDE. [Concomitant]
     Active Substance: HYDROCHLOROTHIAZIDE
     Route: 048

REACTIONS (8)
  - Fatigue [Unknown]
  - Dysgeusia [Unknown]
  - Muscle spasms [Unknown]
  - Pulmonary embolism [Unknown]
  - Alopecia [Unknown]
  - Thrombosis [Unknown]
  - Diarrhoea [Unknown]
  - Weight decreased [Unknown]

NARRATIVE: CASE EVENT DATE: 201509
